FAERS Safety Report 4314941-7 (Version None)
Quarter: 2004Q1

REPORT INFORMATION
  Report Type: 
  Country: None (occurrence: None)
  Receive Date: 20040310
  Receipt Date: 20040310
  Transmission Date: 20041129
  Serious: Yes (Hospitalization)
  Sender: FDA-Public Use
  Company Number: None

PATIENT
  Age: 16 Year
  Sex: Male
  Weight: 74 kg

DRUGS (4)
  1. PEG ASPARAGINASE [Suspect]
     Indication: LEUKAEMIA
     Dosage: 4800 UNITS IV X 1 ON 11/25/03 [IN EVERY 6 WEEKS]
     Route: 042
     Dates: start: 20031125
  2. DEXAMETHASONE [Concomitant]
  3. METHOTREXATE [Concomitant]
  4. ONDANSETRON HCL [Concomitant]

REACTIONS (2)
  - DEEP VEIN THROMBOSIS [None]
  - PULMONARY EMBOLISM [None]
